FAERS Safety Report 4879956-9 (Version None)
Quarter: 2006Q1

REPORT INFORMATION
  Report Type: 
  Country: None (occurrence: None)
  Receive Date: 20060113
  Receipt Date: 20060103
  Transmission Date: 20060701
  Serious: Yes (Hospitalization, Disabling)
  Sender: FDA-Public Use
  Company Number: US-MERCK-0601USA00460

PATIENT
  Age: 59 Year
  Sex: Male
  Weight: 91 kg

DRUGS (5)
  1. VIOXX [Suspect]
     Indication: PAIN
     Route: 048
     Dates: start: 19980101, end: 20000101
  2. DIOVAN [Concomitant]
     Route: 065
  3. GLUCOPHAGE [Concomitant]
     Route: 065
  4. PROSCAR [Concomitant]
     Route: 065
  5. CARDURA [Concomitant]
     Route: 065

REACTIONS (4)
  - ARTHRITIS [None]
  - ARTHROPATHY [None]
  - MYOCARDIAL INFARCTION [None]
  - PLEURAL EFFUSION [None]
